FAERS Safety Report 25409068 (Version 2)
Quarter: 2025Q3

REPORT INFORMATION
  Report Type: Report from Study
  Country: US (occurrence: US)
  Receive Date: 20250607
  Receipt Date: 20250809
  Transmission Date: 20251020
  Serious: Yes (Other)
  Sender: ALEXION PHARMACEUTICALS
  Company Number: US-AstraZeneca-CH-00885492A

PATIENT
  Sex: Female

DRUGS (1)
  1. SODIUM ZIRCONIUM CYCLOSILICATE [Suspect]
     Active Substance: SODIUM ZIRCONIUM CYCLOSILICATE
     Route: 065

REACTIONS (3)
  - Cerebrovascular accident [Unknown]
  - Intellectual disability [Unknown]
  - Blindness [Unknown]
